FAERS Safety Report 7777047-0 (Version None)
Quarter: 2011Q3

REPORT INFORMATION
  Report Type: 
  Country: None (occurrence: None)
  Receive Date: 20110926
  Receipt Date: 20110926
  Transmission Date: 20111222
  Serious: Yes (Other)
  Sender: FDA-Public Use
  Company Number: None

PATIENT
  Age: 58 Year
  Sex: Female
  Weight: 58.967 kg

DRUGS (1)
  1. LEVAQUIN [Suspect]
     Indication: SINUSITIS
     Dosage: 1 TABLET
     Route: 048
     Dates: start: 20110103, end: 20110107

REACTIONS (13)
  - ACNE [None]
  - MUSCULAR WEAKNESS [None]
  - ABASIA [None]
  - TINNITUS [None]
  - TENDON PAIN [None]
  - GRIP STRENGTH DECREASED [None]
  - IMMUNE SYSTEM DISORDER [None]
  - ARTHRALGIA [None]
  - ASTHENIA [None]
  - BURNING SENSATION [None]
  - IRRITABLE BOWEL SYNDROME [None]
  - PAIN IN EXTREMITY [None]
  - ACTIVITIES OF DAILY LIVING IMPAIRED [None]
